FAERS Safety Report 6054007-1 (Version None)
Quarter: 2009Q1

REPORT INFORMATION
  Report Type: 
  Country: None (occurrence: None)
  Receive Date: 20090123
  Receipt Date: 20090123
  Transmission Date: 20090719
  Serious: Yes (Life-Threatening, Other)
  Sender: FDA-Public Use
  Company Number: None

PATIENT
  Age: 17 Year
  Sex: Male
  Weight: 68.0396 kg

DRUGS (2)
  1. HEPARIN [Suspect]
     Indication: INTRAVENOUS CATHETER MANAGEMENT
     Dates: start: 20061107, end: 20061111
  2. HEPARIN [Suspect]
     Indication: SURGERY
     Dates: start: 20061107, end: 20061111

REACTIONS (9)
  - CHEST PAIN [None]
  - COLD SWEAT [None]
  - DYSPHAGIA [None]
  - ERYTHEMA [None]
  - LOCAL SWELLING [None]
  - LUNG DISORDER [None]
  - ODYNOPHAGIA [None]
  - PULMONARY THROMBOSIS [None]
  - SWELLING FACE [None]
